FAERS Safety Report 21416684 (Version 1)
Quarter: 2022Q4

REPORT INFORMATION
  Report Type: Spontaneous
  Country: US (occurrence: US)
  Receive Date: 20221006
  Receipt Date: 20221006
  Transmission Date: 20230113
  Serious: No
  Sender: FDA-Public Use
  Company Number: US-PERRIGO-22US005732

PATIENT
  Age: 74 Year
  Sex: Female
  Weight: 48.073 kg

DRUGS (1)
  1. DIMETHICONE\LOPERAMIDE HYDROCHLORIDE [Suspect]
     Active Substance: DIMETHICONE\LOPERAMIDE HYDROCHLORIDE
     Indication: Diarrhoea
     Dosage: 1 TABLET, PRN
     Route: 048
     Dates: start: 20220401, end: 20220410

REACTIONS (2)
  - Retching [Recovered/Resolved]
  - Intentional product use issue [Recovered/Resolved]

NARRATIVE: CASE EVENT DATE: 20220401
